FAERS Safety Report 18709137 (Version 3)
Quarter: 2021Q1

REPORT INFORMATION
  Report Type: Spontaneous
  Country: CA (occurrence: CA)
  Receive Date: 20210107
  Receipt Date: 20210201
  Transmission Date: 20210419
  Serious: Yes (Hospitalization, Other)
  Sender: FDA-Public Use
  Company Number: CA-SA-2020SA369516

PATIENT
  Age: 9 Year
  Sex: Female

DRUGS (3)
  1. MYOZYME [Suspect]
     Active Substance: ALGLUCOSIDASE ALFA
     Dosage: 40 MG/KG, QW
     Dates: start: 202012
  2. MYOZYME [Suspect]
     Active Substance: ALGLUCOSIDASE ALFA
     Indication: GLYCOGEN STORAGE DISEASE TYPE II
     Dosage: 20 MG/KG, QOW
  3. MYOZYME [Suspect]
     Active Substance: ALGLUCOSIDASE ALFA
     Dosage: 40 MG/KG, QOW
     Route: 042
     Dates: start: 2018, end: 202012

REACTIONS (10)
  - Near death experience [Recovering/Resolving]
  - Syncope [Recovering/Resolving]
  - Respiratory disorder [Recovering/Resolving]
  - General physical health deterioration [Recovering/Resolving]
  - Central venous catheterisation [Unknown]
  - Off label use [Unknown]
  - Increased bronchial secretion [Recovering/Resolving]
  - Dyspnoea [Recovering/Resolving]
  - Acute respiratory distress syndrome [Recovering/Resolving]
  - Muscular weakness [Unknown]

NARRATIVE: CASE EVENT DATE: 2018
